FAERS Safety Report 4444292-1 (Version None)
Quarter: 2004Q3

REPORT INFORMATION
  Report Type: 
  Country: None (occurrence: None)
  Receive Date: 20040813
  Receipt Date: 20030822
  Transmission Date: 20050211
  Serious: No
  Sender: FDA-Public Use
  Company Number: US-JNJFOC-20040703895

PATIENT
  Age: 12 Month
  Sex: Female
  Weight: 8.6183 kg

DRUGS (1)
  1. MOTRIN [Suspect]
     Indication: PYREXIA
     Dosage: ORAL
     Route: 048

REACTIONS (2)
  - ERYTHEMA [None]
  - URTICARIA [None]
